FAERS Safety Report 6666060-2 (Version None)
Quarter: 2010Q2

REPORT INFORMATION
  Report Type: 
  Country: None (occurrence: None)
  Receive Date: 20100402
  Receipt Date: 20100329
  Transmission Date: 20101027
  Serious: Yes (Hospitalization)
  Sender: FDA-Public Use
  Company Number: D0067047A

PATIENT
  Age: 68 Year
  Sex: Male
  Weight: 75 kg

DRUGS (6)
  1. ARIXTRA [Suspect]
     Indication: ATRIAL FIBRILLATION
     Route: 058
     Dates: start: 20081126, end: 20081129
  2. ENOXAPARIN SODIUM [Suspect]
     Route: 065
     Dates: start: 20081116, end: 20081126
  3. ASPIRIN [Suspect]
     Route: 065
     Dates: start: 20091129, end: 20091129
  4. ARGATROBAN [Suspect]
     Route: 042
     Dates: start: 20081130, end: 20081202
  5. DANAPAROID SODIUM [Suspect]
     Dosage: 750IU THREE TIMES PER DAY
     Route: 058
     Dates: start: 20081202, end: 20081204
  6. CLOPIDOGREL [Concomitant]
     Route: 065
     Dates: start: 20081129, end: 20081129

REACTIONS (3)
  - AORTIC VALVE INCOMPETENCE [None]
  - MYOCARDIAL INFARCTION [None]
  - THROMBOCYTOPENIA [None]
